FAERS Safety Report 7294041-7 (Version None)
Quarter: 2011Q1

REPORT INFORMATION
  Report Type: 
  Country: None (occurrence: None)
  Receive Date: 20110203
  Receipt Date: 20110127
  Transmission Date: 20110831
  Serious: Yes (Life-Threatening, Hospitalization)
  Sender: FDA-Public Use
  Company Number: GER/UKI/11/0017281

PATIENT
  Age: 87 Year
  Sex: Male

DRUGS (11)
  1. ASPIRIN [Suspect]
     Indication: MYOCARDIAL ISCHAEMIA
     Dosage: 75 MG, 1 IN 1 D, ORAL
     Route: 048
     Dates: end: 20101031
  2. CO-AMOXICLAV (AUGMENTIN /00756801/) [Concomitant]
  3. AMLODIPINE [Concomitant]
  4. FLOXACILLIN SODIUM [Concomitant]
  5. CARBAMAZEPINE [Concomitant]
  6. PARACETAMOL (PARACETAMOL) [Concomitant]
  7. NITROGLYCERIN [Concomitant]
  8. TAZOCIN (PIP/TAZO) [Concomitant]
  9. CLOPIDOGREL [Suspect]
     Indication: ACUTE MYOCARDIAL INFARCTION
     Dosage: 75 MG, 1 IN 1 D, ORAL
     Route: 048
     Dates: start: 20101026, end: 20101029
  10. TAMSULOSIN HCL [Concomitant]
  11. LEVOTHYROXINE SODIUM [Concomitant]

REACTIONS (3)
  - MYOCARDIAL INFARCTION [None]
  - HAEMATEMESIS [None]
  - MELAENA [None]
